FAERS Safety Report 6681084-7 (Version None)
Quarter: 2010Q2

REPORT INFORMATION
  Report Type: 
  Country: None (occurrence: None)
  Receive Date: 20100412
  Receipt Date: 20100329
  Transmission Date: 20101027
  Serious: Yes (Hospitalization)
  Sender: FDA-Public Use
  Company Number: DSJ-2010-05076

PATIENT
  Age: 74 Year
  Sex: Male

DRUGS (6)
  1. OLMESARTAN MEDOXOMIL [Suspect]
     Indication: HYPERTENSION
     Dosage: 20 MG, PER ORAL
     Route: 048
     Dates: start: 20100115, end: 20100316
  2. TRICHLORMETHIAZIDE [Suspect]
     Indication: HYPERTENSION
     Dates: start: 20100115, end: 20100316
  3. PIRESSPA (PIRFENIDONE) (PIRFENIDONE) [Suspect]
     Dates: end: 20100316
  4. GLIMICRON (GLICLAZIDE) (GLICLAZIDE) [Concomitant]
  5. ACTOS (PIOGLITAZONE) (PIOGLITAZONE) [Concomitant]
  6. BASEN (VOGLIBOSE) (VOGLIBOSE) [Concomitant]

REACTIONS (4)
  - CONDITION AGGRAVATED [None]
  - INTERSTITIAL LUNG DISEASE [None]
  - LYMPHOCYTE STIMULATION TEST POSITIVE [None]
  - SKIN TEST POSITIVE [None]
